FAERS Safety Report 21393135 (Version 2)
Quarter: 2022Q4

REPORT INFORMATION
  Report Type: Spontaneous
  Country: PT (occurrence: None)
  Receive Date: 20220929
  Receipt Date: 20221012
  Transmission Date: 20230113
  Serious: Yes (Hospitalization)
  Sender: FDA-Public Use
  Company Number: 2022A324152

PATIENT
  Age: 74 Year
  Sex: Female

DRUGS (12)
  1. DAPAGLIFLOZIN [Suspect]
     Active Substance: DAPAGLIFLOZIN
     Indication: Type 2 diabetes mellitus
     Dosage: 5 MG/DAY (10 MG TABLET SPLIT)
     Route: 048
     Dates: start: 20220901, end: 20220903
  2. SIMVASTATIN [Concomitant]
     Active Substance: SIMVASTATIN
     Dosage: 24 - EVERY HOUR
     Route: 048
  3. LOSARTAN [Concomitant]
     Active Substance: LOSARTAN
     Dosage: 24 - EVERY HOUR
     Route: 048
  4. FUROSEMIDE [Concomitant]
     Active Substance: FUROSEMIDE
     Dosage: 24 - EVERY HOUR
     Route: 048
  5. BETA-HISTIN [Concomitant]
     Dosage: 12 - EVERY HOUR
     Route: 048
  6. AZARGA [Concomitant]
     Active Substance: BRINZOLAMIDE\TIMOLOL MALEATE
     Dosage: 10 MG/ML + 5 MG/ML
     Route: 048
  7. BISACODIL [Concomitant]
     Dosage: 24 - EVERY HOUR
     Route: 048
  8. OMEPRAZOLE [Concomitant]
     Active Substance: OMEPRAZOLE
     Dosage: 1CP FASTING + 1CP AT BEDTIME
     Route: 048
  9. INSULIN LISPRO [Concomitant]
     Active Substance: INSULIN LISPRO
     Dosage: 100 IU
     Route: 048
  10. INSULIN GLARGINE [Concomitant]
     Active Substance: INSULIN GLARGINE
     Dosage: 100 U/ML
     Route: 048
  11. GLYCLAZIDE [Concomitant]
     Dosage: 1 CP TO BREAKFAST
     Route: 048
  12. RIVAROXABANO [Concomitant]
     Dosage: 24 - EVERY HOUR
     Route: 048

REACTIONS (1)
  - Toxic skin eruption [Unknown]

NARRATIVE: CASE EVENT DATE: 20220902
